FAERS Safety Report 5390980-2 (Version None)
Quarter: 2007Q3

REPORT INFORMATION
  Report Type: 
  Country: None (occurrence: None)
  Receive Date: 20070716
  Receipt Date: 20050912
  Transmission Date: 20080115
  Serious: Yes (Hospitalization)
  Sender: FDA-Public Use
  Company Number: MPS1-10425

PATIENT
  Age: 17 Year
  Sex: Female
  Weight: 50 kg

DRUGS (2)
  1. ALDURAZYME [Suspect]
     Indication: MUCOPOLYSACCHARIDOSIS I
     Dosage: 29 MG QWK IV
     Route: 042
     Dates: start: 20041201
  2. MPS 1 [Suspect]
     Dosage: 0.58MG/KG QWK IV
     Route: 042
     Dates: start: 20001206, end: 20041122

REACTIONS (6)
  - CONVULSION [None]
  - DEPRESSION [None]
  - PARAPLEGIA [None]
  - PROCEDURAL COMPLICATION [None]
  - SPINAL COLUMN STENOSIS [None]
  - SPINAL CORD INFARCTION [None]
